FAERS Safety Report 16664538 (Version 3)
Quarter: 2019Q3

REPORT INFORMATION
  Report Type: Spontaneous
  Country: US (occurrence: US)
  Receive Date: 20190802
  Receipt Date: 20190903
  Transmission Date: 20191004
  Serious: Yes (Hospitalization)
  Sender: FDA-Public Use
  Company Number: US-ACTELION-A-NJ2019-193777

PATIENT
  Sex: Male

DRUGS (2)
  1. VELETRI [Suspect]
     Active Substance: EPOPROSTENOL
     Indication: PULMONARY ARTERIAL HYPERTENSION
     Dosage: 25 NG/KG, PER MIN
     Route: 042
     Dates: start: 20190406
  2. AMBRISENTAN [Concomitant]
     Active Substance: AMBRISENTAN
     Dosage: 10 MG, QD

REACTIONS (2)
  - Pleural effusion [Unknown]
  - Dyspnoea [Unknown]
